FAERS Safety Report 12116559 (Version 4)
Quarter: 2017Q1

REPORT INFORMATION
  Report Type: Spontaneous
  Country: US (occurrence: US)
  Receive Date: 20160225
  Receipt Date: 20170112
  Transmission Date: 20170428
  Serious: No
  Sender: FDA-Public Use
  Company Number: US-ACTELION PHARMACEUTICALS US, INC.-A-US2015-118937

PATIENT
  Age: 47 Year
  Sex: Female

DRUGS (3)
  1. VELETRI [Suspect]
     Active Substance: EPOPROSTENOL
     Indication: PULMONARY ARTERIAL HYPERTENSION
     Dosage: 47 NG/KG, PER MIN
     Route: 042
     Dates: start: 20140805
  2. COUMADIN [Concomitant]
     Active Substance: WARFARIN SODIUM
  3. ADCIRCA [Concomitant]
     Active Substance: TADALAFIL

REACTIONS (12)
  - Oliguria [Unknown]
  - Chest discomfort [Unknown]
  - Musculoskeletal stiffness [Unknown]
  - Arthralgia [Unknown]
  - Anxiety [Unknown]
  - Nausea [Unknown]
  - Diarrhoea [Unknown]
  - Fluid overload [Unknown]
  - Dyspnoea exertional [Unknown]
  - Gouty arthritis [Unknown]
  - Oedema [Unknown]
  - Dyspnoea [Unknown]
